FAERS Safety Report 6166936-9 (Version None)
Quarter: 2009Q2

REPORT INFORMATION
  Report Type: 
  Country: None (occurrence: None)
  Receive Date: 20090424
  Receipt Date: 20090421
  Transmission Date: 20091009
  Serious: Yes (Hospitalization)
  Sender: FDA-Public Use
  Company Number: US-AVENTIS-200912710US

PATIENT
  Sex: Male

DRUGS (15)
  1. LANTUS [Suspect]
     Dosage: DOSE: 25-26
     Route: 058
  2. OPTICLIK (INSULIN INJECTION PEN) [Suspect]
     Route: 058
  3. HUMALOG [Concomitant]
     Dosage: DOSE: 120-150 3 UNITS, 150-200 5 UNITS, 200-250 7UNITS, 250-300 8 UNITS
  4. HYDROCHLOROTHIAZIDE [Concomitant]
     Dosage: DOSE: UNK
  5. FLOMAX [Concomitant]
     Dosage: DOSE: UNK
  6. NORVASC [Concomitant]
     Dosage: DOSE: UNK
  7. ATENOLOL [Concomitant]
     Dosage: DOSE: UNK
  8. RAMIPRIL [Concomitant]
     Dosage: DOSE: UNK
  9. ACTOS [Concomitant]
     Dosage: DOSE: UNK
  10. VYTORIN [Concomitant]
     Dosage: DOSE: UNK
  11. GABAPENTIN [Concomitant]
     Dosage: DOSE: UNK
  12. EFFEXOR XR [Concomitant]
     Dosage: DOSE: UNK
  13. AMBIEN [Concomitant]
     Dosage: DOSE: UNK
  14. CENTRUM SILVER                     /01292501/ [Concomitant]
     Dosage: DOSE: UNK
  15. MOTRIN [Concomitant]
     Dosage: DOSE: UNK

REACTIONS (3)
  - BLOOD GLUCOSE DECREASED [None]
  - BLOOD GLUCOSE INCREASED [None]
  - LUMBAR VERTEBRAL FRACTURE [None]
